FAERS Safety Report 14612096 (Version 1)
Quarter: 2018Q1

REPORT INFORMATION
  Report Type: Spontaneous
  Country: NG (occurrence: NG)
  Receive Date: 20180307
  Receipt Date: 20180307
  Transmission Date: 20180509
  Serious: Yes (Other)
  Sender: FDA-Public Use
  Company Number: None

PATIENT
  Age: 52 Year
  Sex: Female
  Weight: 90 kg

DRUGS (4)
  1. LISINOPRIL. [Concomitant]
     Active Substance: LISINOPRIL
  2. AMLODIPINE [Concomitant]
     Active Substance: AMLODIPINE BESYLATE
  3. SKIN PRO EXTREME SKIN TAG + MOLE CORRECTOR [Suspect]
     Active Substance: SALICYLIC ACID
     Indication: ACROCHORDON EXCISION
     Dosage: ?          QUANTITY:1 1;?
     Route: 061
     Dates: start: 20171129, end: 20171210
  4. CENTRUM SILVER 50+ [Concomitant]

REACTIONS (8)
  - Anorectal discomfort [None]
  - Nasal discomfort [None]
  - Eye disorder [None]
  - Lacrimation increased [None]
  - Dyspepsia [None]
  - Eye irritation [None]
  - Nasal disorder [None]
  - Vulvovaginal burning sensation [None]

NARRATIVE: CASE EVENT DATE: 20171210
